FAERS Safety Report 9933176 (Version 1)
Quarter: 2014Q1

REPORT INFORMATION
  Report Type: Spontaneous
  Country: US (occurrence: US)
  Receive Date: 20140228
  Receipt Date: 20140228
  Transmission Date: 20141002
  Serious: Yes (Other)
  Sender: FDA-Public Use
  Company Number: US-BAYER-2014-028129

PATIENT
  Age: 49 Year
  Sex: Female

DRUGS (3)
  1. MIRENA [Suspect]
     Indication: UTERINE ENLARGEMENT
     Dosage: 20 MCG/24HR, CONT
     Route: 015
     Dates: start: 201306
  2. MIRENA [Suspect]
     Indication: MENORRHAGIA
  3. MIRENA [Suspect]
     Indication: NEOPLASM PROPHYLAXIS

REACTIONS (1)
  - Colon cancer [Not Recovered/Not Resolved]
